FAERS Safety Report 25576760 (Version 2)
Quarter: 2025Q3

REPORT INFORMATION
  Report Type: Spontaneous
  Country: EU (occurrence: EU)
  Receive Date: 20250718
  Receipt Date: 20250911
  Transmission Date: 20251021
  Serious: Yes (Other)
  Sender: RANBAXY
  Company Number: EU-AFSSAPS-BR2025000229

PATIENT
  Age: 62 Year
  Sex: Female

DRUGS (2)
  1. BOSENTAN [Suspect]
     Active Substance: BOSENTAN
     Indication: Pulmonary arterial hypertension
     Dosage: 125 MILLIGRAM, DAILY, 62.5 MG TWICE A DAY
     Route: 048
     Dates: start: 20250217, end: 20250304
  2. BOSENTAN [Suspect]
     Active Substance: BOSENTAN
     Indication: Skin ulcer

REACTIONS (1)
  - Hepatitis acute [Recovered/Resolved]

NARRATIVE: CASE EVENT DATE: 20250304
